FAERS Safety Report 21269437 (Version 1)
Quarter: 2022Q3

REPORT INFORMATION
  Report Type: Spontaneous
  Country: US (occurrence: None)
  Receive Date: 20220829
  Receipt Date: 20220829
  Transmission Date: 20221027
  Serious: No
  Sender: FDA-Public Use
  Company Number: None

PATIENT
  Sex: Female

DRUGS (2)
  1. CAPECITABINE [Suspect]
     Active Substance: CAPECITABINE
     Indication: Metastases to liver
     Dosage: TAKE 3 TABLETS (1,500 MG) BY MOUTH IN THE MORNING AND 3 TABLETS (1,500) IN THE EVENING FOR 1 WEEK O
     Route: 048
     Dates: start: 20220523
  2. CAPECITABINE [Suspect]
     Active Substance: CAPECITABINE
     Indication: Cholangiocarcinoma

REACTIONS (1)
  - Drug ineffective [None]
